FAERS Safety Report 4445923-2 (Version None)
Quarter: 2004Q3

REPORT INFORMATION
  Report Type: 
  Country: None (occurrence: None)
  Receive Date: 20040908
  Receipt Date: 20040908
  Transmission Date: 20050211
  Serious: Yes (Hospitalization)
  Sender: FDA-Public Use
  Company Number: None

PATIENT
  Age: 80 Year
  Sex: Male

DRUGS (15)
  1. DILTIAZEM [Suspect]
     Indication: HYPERTENSION
     Dosage: 180 MG QD
     Dates: start: 20030301
  2. PRIMIDONE [Concomitant]
  3. ASPIRIN [Concomitant]
  4. TAMSULOSIN [Concomitant]
  5. LORTAB [Concomitant]
  6. ACETAZOLAMIDE [Concomitant]
  7. FUROSEMIDE [Concomitant]
  8. NPH INSULIN [Concomitant]
  9. CLARITIN [Concomitant]
  10. MGO2 [Concomitant]
  11. NITROGLYCERIN [Concomitant]
  12. OMEPRAZOLE [Concomitant]
  13. KCL TAB [Concomitant]
  14. DSS [Concomitant]
  15. SERTRALINE HCL [Concomitant]

REACTIONS (1)
  - SYNCOPE [None]
